FAERS Safety Report 8524388-5 (Version None)
Quarter: 2012Q3

REPORT INFORMATION
  Report Type: 
  Country: None (occurrence: None)
  Receive Date: 20120720
  Receipt Date: 20120712
  Transmission Date: 20120928
  Serious: Yes (Other)
  Sender: FDA-Public Use
  Company Number: DE-UCBSA-061699

PATIENT
  Age: 70 Year
  Sex: Male

DRUGS (2)
  1. KEPPRA [Suspect]
     Dates: start: 20120101, end: 20120101
  2. KEPPRA [Suspect]
     Dates: start: 20120101, end: 20120101

REACTIONS (2)
  - SOMNOLENCE [None]
  - CONVULSION [None]
